FAERS Safety Report 4910621-5 (Version None)
Quarter: 2006Q1

REPORT INFORMATION
  Report Type: 
  Country: None (occurrence: None)
  Receive Date: 20060214
  Receipt Date: 20060124
  Transmission Date: 20060701
  Serious: Yes (Hospitalization, Disabling)
  Sender: FDA-Public Use
  Company Number: AU-BOEHRINGER INGELHEIM PHARMACEUTICALS, INC.-2006-BP-00900AU

PATIENT
  Sex: Female

DRUGS (5)
  1. MOBIC [Suspect]
     Indication: OSTEOARTHRITIS
     Route: 048
     Dates: start: 20030524, end: 20060119
  2. SOMAC [Concomitant]
     Route: 048
  3. FOSAMAX [Concomitant]
     Route: 048
  4. CALTRATE (CALCIUM CARBONATE) [Concomitant]
     Route: 048
  5. ALPRAZOLAM [Concomitant]
     Route: 048

REACTIONS (4)
  - ANAEMIA [None]
  - HAEMOGLOBIN DECREASED [None]
  - HAEMORRHAGE [None]
  - INFLAMMATION [None]
